FAERS Safety Report 8815276 (Version 3)
Quarter: 2013Q3

REPORT INFORMATION
  Report Type: Report from Study
  Country: US (occurrence: US)
  Receive Date: 20120928
  Receipt Date: 20130711
  Transmission Date: 20140515
  Serious: No
  Sender: FDA-Public Use
  Company Number: US-VERTEX PHARMACEUTICAL INC.-2012-020470

PATIENT
  Age: 38 Year
  Sex: Female

DRUGS (3)
  1. VX-770 [Suspect]
     Indication: CYSTIC FIBROSIS
     Dosage: 150 MG, BID
     Route: 048
     Dates: start: 201206
  2. ANTIBIOTICS [Concomitant]
  3. INHALER [Concomitant]

REACTIONS (2)
  - Increased upper airway secretion [Not Recovered/Not Resolved]
  - Migraine [Not Recovered/Not Resolved]
